FAERS Safety Report 9667883 (Version 1)
Quarter: 2013Q4

REPORT INFORMATION
  Report Type: Spontaneous
  Country: CO (occurrence: CO)
  Receive Date: 20131104
  Receipt Date: 20131104
  Transmission Date: 20140711
  Serious: Yes (Death)
  Sender: FDA-Public Use
  Company Number: CO-PFIZER INC-2013313930

PATIENT
  Age: 61 Year
  Sex: Male

DRUGS (1)
  1. LYRICA [Suspect]
     Indication: PAIN
     Dosage: 150 MG, 1X/DAY
     Route: 048
     Dates: start: 2008

REACTIONS (3)
  - Cerebrovascular accident [Fatal]
  - Blood glucose increased [Unknown]
  - Hypertension [Unknown]
